FAERS Safety Report 18238685 (Version 1)
Quarter: 2020Q3

REPORT INFORMATION
  Report Type: Other
  Country: GB (occurrence: GB)
  Receive Date: 20200907
  Receipt Date: 20200907
  Transmission Date: 20201103
  Serious: Yes (Other)
  Sender: FDA-Public Use
  Company Number: GB-ROCHE-2671877

PATIENT

DRUGS (9)
  1. VINCRISTINE [Suspect]
     Active Substance: VINCRISTINE
     Indication: B-CELL LYMPHOMA
     Dosage: 24 HOUR CONTINUOUS INFUSION OVER 4 DAYS (ON DAY 3, 4, 5 AND 6)
     Route: 065
  2. IFOSFAMIDE. [Suspect]
     Active Substance: IFOSFAMIDE
     Indication: B-CELL LYMPHOMA
     Dosage: ON DAY 3, 4 AND 5
     Route: 065
  3. ETOPOSIDE. [Suspect]
     Active Substance: ETOPOSIDE
     Indication: B-CELL LYMPHOMA
     Route: 065
  4. IDARUBICIN [Suspect]
     Active Substance: IDARUBICIN
     Indication: B-CELL LYMPHOMA
     Dosage: FROM DAY 3 AND 4
     Route: 065
  5. MESNA. [Concomitant]
     Active Substance: MESNA
     Dosage: SHORTENED INFUSION
  6. RITUXIMAB. [Suspect]
     Active Substance: RITUXIMAB
     Indication: B-CELL LYMPHOMA
     Dosage: ON DAY 1 AND DAY 3
     Route: 065
  7. CARBOPLATIN. [Suspect]
     Active Substance: CARBOPLATIN
     Indication: B-CELL LYMPHOMA
     Dosage: ON DAY 3
     Route: 065
  8. IBRUTINIB [Suspect]
     Active Substance: IBRUTINIB
     Indication: B-CELL LYMPHOMA
     Route: 065
  9. MESNA. [Concomitant]
     Active Substance: MESNA
     Indication: HAEMORRHAGE PROPHYLAXIS
     Dosage: WITH IFOSFAMIDE AND AT 3, 6, 9, AND 12 HOURS AFTER THE START OF EACH DOSE

REACTIONS (9)
  - Neutrophil count decreased [Unknown]
  - Hypotension [Unknown]
  - Platelet count increased [Unknown]
  - Renal disorder [Unknown]
  - Spinal cord haematoma [Unknown]
  - Melaena [Unknown]
  - Subarachnoid haemorrhage [Unknown]
  - Sepsis [Unknown]
  - Cystitis haemorrhagic [Unknown]
